FAERS Safety Report 7887997-2 (Version None)
Quarter: 2011Q4

REPORT INFORMATION
  Report Type: 
  Country: None (occurrence: None)
  Receive Date: 20111101
  Receipt Date: 20111101
  Transmission Date: 20120403
  Serious: No
  Sender: FDA-Public Use
  Company Number: None

PATIENT
  Age: 71 Year
  Sex: Female
  Weight: 35.5 kg

DRUGS (3)
  1. AZITHROMYCIN [Suspect]
     Indication: SINUSITIS
     Dosage: 200 MG/5ML, ORAL SUSPENSION ONCE A DAY FOR 6 DAYS ORAL
     Route: 048
     Dates: start: 20111005
  2. AZITHROMYCIN [Suspect]
     Indication: SINUSITIS
     Dosage: 200 MG/5ML, ORAL SUSPENSION ONCE A DAY FOR 6 DAYS ORAL
     Route: 048
     Dates: start: 20111003
  3. AZITHROMYCIN [Suspect]
     Indication: SINUSITIS
     Dosage: 200 MG/5ML, ORAL SUSPENSION ONCE A DAY FOR 6 DAYS ORAL
     Route: 048
     Dates: start: 20111004

REACTIONS (1)
  - PRODUCT QUALITY ISSUE [None]
